FAERS Safety Report 8881590 (Version 1)
Quarter: 2012Q4

REPORT INFORMATION
  Report Type: 
  Country: US (occurrence: US)
  Receive Date: 20121102
  Receipt Date: 20121102
  Transmission Date: 20130627
  Serious: Yes (Other)
  Sender: FDA-Public Use
  Company Number: US-VIROPHARMA INCORPORATED-20121022CINRY3535

PATIENT
  Sex: Female

DRUGS (8)
  1. CINRYZE (C1 ESTERASE INHIBITOR (HUMAN)) [Suspect]
     Indication: HEREDITARY ANGIOEDEMA
     Dosage: 1000U Monday, 1000U Wednesday, 1500U Friday
     Route: 065
     Dates: start: 2010
  2. ALBUTEROL [Concomitant]
     Indication: ASTHMA
     Dosage: unknown
     Route: 065
  3. ASMANEX [Concomitant]
     Indication: ASTHMA
     Dosage: unknown
     Route: 065
  4. CRESTOR [Concomitant]
     Indication: PRODUCT USED FOR UNKNOWN INDICATION
     Dosage: unknown
     Route: 065
  5. CLONAZEPAM [Concomitant]
     Indication: STRESS
     Route: 065
  6. TYLENOL [Concomitant]
     Indication: PRODUCT USED FOR UNKNOWN INDICATION
     Dosage: unknown
     Route: 065
  7. FIRAZYR [Concomitant]
     Indication: HEREDITARY ANGIOEDEMA
     Dosage: unknown
     Route: 065
  8. KALBITOR [Concomitant]
     Indication: HEREDITARY ANGIOEDEMA
     Dosage: unknown
     Route: 065

REACTIONS (8)
  - Convulsion [Recovered/Resolved]
  - Convulsion [Not Recovered/Not Resolved]
  - Asthenia [Recovered/Resolved]
  - Fatigue [Recovered/Resolved]
  - Diarrhoea [Recovered/Resolved]
  - Body temperature increased [Recovered/Resolved]
  - Inappropriate schedule of drug administration [Not Recovered/Not Resolved]
  - Therapy regimen changed [Not Recovered/Not Resolved]
